FAERS Safety Report 7531598-2 (Version None)
Quarter: 2011Q2

REPORT INFORMATION
  Report Type: 
  Country: None (occurrence: None)
  Receive Date: 20110608
  Receipt Date: 20110602
  Transmission Date: 20111010
  Serious: Yes (Hospitalization)
  Sender: FDA-Public Use
  Company Number: US-SANOFI-AVENTIS-2011SA024062

PATIENT
  Age: 68 Year
  Sex: Male
  Weight: 102.4 kg

DRUGS (13)
  1. DOCETAXEL [Suspect]
     Indication: PROSTATE CANCER
     Dosage: 75 MG/M2 INTRAVENOUSLY (IV) ONCE PER 3 WEEKS FOR 10 CYCLES
     Route: 041
     Dates: start: 20110406, end: 20110406
  2. ATENOLOL [Concomitant]
     Route: 048
  3. DILTIAZEM [Concomitant]
     Route: 065
  4. CRESTOR [Concomitant]
     Route: 048
  5. ELIGARD [Suspect]
     Indication: PROSTATE CANCER
     Dosage: 22.5 MG SUBCUTANEOUSLY (SC) EVERY 3 MONTHS FOR 18 MONTHS
     Route: 058
     Dates: start: 20110406, end: 20110406
  6. DEXAMETHASONE [Concomitant]
     Dosage: DAY BEFORE AND AFTER CHEMOTHERAPY
     Route: 065
  7. ASPIRIN [Concomitant]
     Route: 065
  8. IMDUR [Concomitant]
     Route: 048
  9. ALLOPURINOL [Concomitant]
     Route: 048
  10. PROCHLORPERAZINE TAB [Concomitant]
     Indication: NAUSEA
     Dosage: AS NEEDED
     Route: 065
  11. CASODEX [Suspect]
     Indication: PROSTATE CANCER
     Dosage: 50 MG ORALLY DAILY FOR 4 WEEKS
     Route: 048
     Dates: start: 20110406, end: 20110407
  12. ACTOS [Concomitant]
     Route: 048
  13. ZETIA [Concomitant]
     Route: 048

REACTIONS (1)
  - CHEST PAIN [None]
